FAERS Safety Report 17266554 (Version 1)
Quarter: 2020Q1

REPORT INFORMATION
  Report Type: Spontaneous
  Country: US (occurrence: US)
  Receive Date: 20200113
  Receipt Date: 20200113
  Transmission Date: 20200409
  Serious: Yes (Other)
  Sender: FDA-Public Use
  Company Number: None

PATIENT
  Age: 73 Year
  Sex: Female
  Weight: 72 kg

DRUGS (13)
  1. FLUOROURACIL. [Concomitant]
     Active Substance: FLUOROURACIL
  2. CBD OIL [Concomitant]
     Active Substance: CANNABIDIOL\HERBALS
  3. IBUPROFEN. [Concomitant]
     Active Substance: IBUPROFEN
  4. SUDAFED [Concomitant]
     Active Substance: PSEUDOEPHEDRINE HYDROCHLORIDE
  5. SUCRALFATE. [Concomitant]
     Active Substance: SUCRALFATE
  6. VOLTAREN [Concomitant]
     Active Substance: DICLOFENAC SODIUM
  7. SPRYCEL [Suspect]
     Active Substance: DASATINIB
     Indication: CHRONIC MYELOID LEUKAEMIA
     Route: 048
     Dates: start: 20190321
  8. DICYCLOMINE [Concomitant]
     Active Substance: DICYCLOMINE HYDROCHLORIDE
  9. AMOXICILLIN. [Concomitant]
     Active Substance: AMOXICILLIN
  10. BACLOFEN. [Concomitant]
     Active Substance: BACLOFEN
  11. MULTIVITAMIN [Concomitant]
     Active Substance: VITAMINS
  12. VSL #3 [Concomitant]
  13. AMBIEN [Concomitant]
     Active Substance: ZOLPIDEM TARTRATE

REACTIONS (1)
  - Irritable bowel syndrome [None]

NARRATIVE: CASE EVENT DATE: 20200113
